FAERS Safety Report 5511285-2 (Version None)
Quarter: 2007Q4

REPORT INFORMATION
  Report Type: 
  Country: None (occurrence: None)
  Receive Date: 20071109
  Receipt Date: 20070718
  Transmission Date: 20080405
  Serious: No
  Sender: FDA-Public Use
  Company Number: A0664827A

PATIENT
  Age: 11 Year
  Sex: Male

DRUGS (2)
  1. ALTABAX [Suspect]
     Indication: SKIN ULCER
     Route: 061
     Dates: start: 20070718, end: 20070718
  2. CEPHALEXIN [Concomitant]

REACTIONS (1)
  - BURNING SENSATION [None]
